FAERS Safety Report 4862026-3 (Version None)
Quarter: 2005Q4

REPORT INFORMATION
  Report Type: 
  Country: None (occurrence: None)
  Receive Date: 20051129
  Receipt Date: 20050723
  Transmission Date: 20060501
  Serious: Yes (Hospitalization, Other)
  Sender: FDA-Public Use
  Company Number: US_0410106312

PATIENT
  Age: 39 Year
  Sex: Male
  Weight: 97 kg

DRUGS (14)
  1. ZYPREXA [Suspect]
     Indication: ANXIETY
     Dosage: 25 MG/2 DAY
     Dates: start: 20000907, end: 20050509
  2. ZOLOFT [Concomitant]
  3. SERZONE [Concomitant]
  4. AXID [Concomitant]
  5. PREVACID [Concomitant]
  6. REGLAN [Concomitant]
  7. PROPULSID [Concomitant]
  8. HUMABID (GUAIFENESIN L.A.) [Concomitant]
  9. DILAUDID [Concomitant]
  10. NASAREL (FLUNISOLIDE) [Concomitant]
  11. VITAPLEX [Concomitant]
  12. TENORMIN [Concomitant]
  13. BIOGLUCOSAMINE (GLUCOSAMINE HYDROCHLORIDE) [Concomitant]
  14. LIPRAM [Concomitant]

REACTIONS (11)
  - BLOOD CHOLESTEROL ABNORMAL [None]
  - BLOOD TRIGLYCERIDES INCREASED [None]
  - DIABETES MELLITUS [None]
  - DIABETIC COMA [None]
  - DIABETIC KETOACIDOSIS [None]
  - HYPERTENSION [None]
  - METABOLIC SYNDROME [None]
  - OBESITY [None]
  - PANCREATITIS [None]
  - POLLAKIURIA [None]
  - PRESCRIBED OVERDOSE [None]
